FAERS Safety Report 9542334 (Version 1)
Quarter: 2013Q3

REPORT INFORMATION
  Report Type: Spontaneous
  Country: US (occurrence: None)
  Receive Date: 20130919
  Receipt Date: 20130919
  Transmission Date: 20140515
  Serious: Yes (Life-Threatening, Hospitalization, Disabling)
  Sender: FDA-Public Use
  Company Number: None

PATIENT
  Age: 24 Year
  Sex: Female
  Weight: 108.86 kg

DRUGS (1)
  1. NORDETTE [Suspect]
     Indication: CONTRACEPTION
     Route: 048
     Dates: start: 20010801, end: 20040704

REACTIONS (4)
  - Thrombosis [None]
  - Pulmonary thrombosis [None]
  - Gastrointestinal disorder [None]
  - Thrombosis [None]
